FAERS Safety Report 10787199 (Version 1)
Quarter: 2015Q1

REPORT INFORMATION
  Report Type: Spontaneous
  Country: US (occurrence: US)
  Receive Date: 20150211
  Receipt Date: 20150211
  Transmission Date: 20150721
  Serious: Yes (Hospitalization, Other)
  Sender: FDA-Public Use
  Company Number: US-GLAXOSMITHKLINE-US2015016253

PATIENT
  Age: 65 Year
  Sex: Male

DRUGS (6)
  1. ADVAIR DISKUS [Suspect]
     Active Substance: FLUTICASONE PROPIONATE\SALMETEROL XINAFOATE
     Indication: EMPHYSEMA
  2. PROZAC [Concomitant]
     Active Substance: FLUOXETINE HYDROCHLORIDE
  3. ALBUTEROL. [Concomitant]
     Active Substance: ALBUTEROL
  4. PREDNISONE. [Concomitant]
     Active Substance: PREDNISONE
  5. HYDROCODONE [Concomitant]
     Active Substance: HYDROCODONE
  6. ADVAIR DISKUS [Suspect]
     Active Substance: FLUTICASONE PROPIONATE\SALMETEROL XINAFOATE
     Indication: CHRONIC OBSTRUCTIVE PULMONARY DISEASE
     Dosage: UNK UNK, VA
     Route: 055

REACTIONS (6)
  - Metastatic neoplasm [Not Recovered/Not Resolved]
  - Cough [Not Recovered/Not Resolved]
  - Intentional product use issue [Unknown]
  - Cancer surgery [Recovered/Resolved]
  - Bladder cancer [Not Recovered/Not Resolved]
  - Vomiting [Not Recovered/Not Resolved]

NARRATIVE: CASE EVENT DATE: 201408
